FAERS Safety Report 17981455 (Version 1)
Quarter: 2020Q3

REPORT INFORMATION
  Report Type: Report from Study
  Country: US (occurrence: US)
  Receive Date: 20200706
  Receipt Date: 20200706
  Transmission Date: 20201103
  Serious: Yes (Other)
  Sender: FDA-Public Use
  Company Number: US-ROCHE-2576434

PATIENT
  Sex: Female

DRUGS (13)
  1. ATENOLOL. [Concomitant]
     Active Substance: ATENOLOL
     Route: 048
  2. VEMURAFENIB. [Concomitant]
     Active Substance: VEMURAFENIB
     Indication: ERDHEIM-CHESTER DISEASE
  3. ZELBORAF [Suspect]
     Active Substance: VEMURAFENIB
     Indication: HISTIOCYTOSIS
     Dosage: TAKE 2 TABLET(S) BY MOUTH TWICE A DAY
     Route: 048
  4. DULOXETINE HYDROCHLORIDE. [Concomitant]
     Active Substance: DULOXETINE HYDROCHLORIDE
     Route: 048
  5. ZELBORAF [Suspect]
     Active Substance: VEMURAFENIB
     Indication: ERDHEIM-CHESTER DISEASE
  6. FLONASE [Concomitant]
     Active Substance: FLUTICASONE PROPIONATE
  7. SYNTHROID [Concomitant]
     Active Substance: LEVOTHYROXINE SODIUM
     Route: 048
  8. VEMURAFENIB. [Concomitant]
     Active Substance: VEMURAFENIB
     Indication: THROMBOCYTOPENIA
     Route: 048
  9. POTASSIUM CHLORIDE. [Concomitant]
     Active Substance: POTASSIUM CHLORIDE
     Route: 048
  10. ZELBORAF [Suspect]
     Active Substance: VEMURAFENIB
     Indication: THROMBOCYTOPENIA
  11. CETIRIZINE HCL [Concomitant]
     Active Substance: CETIRIZINE HYDROCHLORIDE
     Route: 048
  12. CALCIUM CARBONATE. [Concomitant]
     Active Substance: CALCIUM CARBONATE
     Route: 048
  13. PRILOSEC [Concomitant]
     Active Substance: OMEPRAZOLE MAGNESIUM
     Route: 048

REACTIONS (11)
  - Diarrhoea [Unknown]
  - Mass [Unknown]
  - Throat irritation [Unknown]
  - Cataract [Unknown]
  - Fatigue [Unknown]
  - Thyroid function test abnormal [Unknown]
  - Rhinorrhoea [Unknown]
  - Vitreous floaters [Unknown]
  - Cough [Unknown]
  - Intentional product use issue [Unknown]
  - Off label use [Unknown]
